FAERS Safety Report 7977513-9 (Version None)
Quarter: 2011Q4

REPORT INFORMATION
  Report Type: 
  Country: None (occurrence: None)
  Receive Date: 20111214
  Receipt Date: 20111120
  Transmission Date: 20120403
  Serious: No
  Sender: FDA-Public Use
  Company Number: US-AMGEN-USASP2011061615

PATIENT
  Sex: Female

DRUGS (2)
  1. ENBREL [Suspect]
     Indication: RHEUMATOID ARTHRITIS
     Dosage: 25 MG, (EVERY 10 DAYS)
     Dates: start: 20010101, end: 20030101
  2. METHOTREXATE [Concomitant]
     Dosage: UNK

REACTIONS (4)
  - ALOPECIA [None]
  - FINGER DEFORMITY [None]
  - NAUSEA [None]
  - DRUG INEFFECTIVE [None]
